FAERS Safety Report 23761193 (Version 1)
Quarter: 2024Q2

REPORT INFORMATION
  Report Type: Report from Study
  Country: GB (occurrence: GB)
  Receive Date: 20240419
  Receipt Date: 20240419
  Transmission Date: 20240716
  Serious: Yes (Other)
  Sender: FDA-Public Use
  Company Number: GB-UCBSA-2024013735

PATIENT
  Age: 21 Year
  Sex: Female
  Weight: 58 kg

DRUGS (8)
  1. CERTOLIZUMAB PEGOL [Suspect]
     Active Substance: CERTOLIZUMAB PEGOL
     Indication: Juvenile idiopathic arthritis
     Dosage: 200 MILLIGRAM, EV 2 WEEKS(QOW)
     Route: 058
     Dates: start: 202001
  2. FOLIC ACID [Concomitant]
     Active Substance: FOLIC ACID
     Indication: Product used for unknown indication
     Dosage: UNK
  3. PREGNACARE [ASCORBIC ACID;FOLIC ACID;NICOTINAMIDE;PYRIDOXINE;RIBOFLAVI [Concomitant]
     Indication: Product used for unknown indication
     Dosage: UNK
  4. VITAMIN D3 [Concomitant]
     Active Substance: CHOLECALCIFEROL
     Indication: Alopecia
     Dosage: 4000 INTERNATIONAL UNIT, 3X/DAY (TID)
     Dates: start: 202403
  5. ZINC [Concomitant]
     Active Substance: PYRITHIONE ZINC\ZINC\ZINC CHLORIDE
     Indication: Alopecia
     Dosage: UNK, 3X/DAY (TID)
  6. ZINC [Concomitant]
     Active Substance: PYRITHIONE ZINC\ZINC\ZINC CHLORIDE
     Indication: Arthritis
  7. FISH OIL [Concomitant]
     Active Substance: FISH OIL
     Indication: Alopecia
     Dosage: UNK, 2X/DAY (BID)
  8. FISH OIL [Concomitant]
     Active Substance: FISH OIL
     Indication: Arthritis

REACTIONS (9)
  - Caesarean section [Unknown]
  - Hyperemesis gravidarum [Unknown]
  - Perinatal depression [Unknown]
  - Maternal exposure before pregnancy [Unknown]
  - Maternal exposure during pregnancy [Unknown]
  - Heart rate decreased [Unknown]
  - Maternal exposure during breast feeding [Unknown]
  - Lactation insufficiency [Unknown]
  - Product use in unapproved indication [Unknown]

NARRATIVE: CASE EVENT DATE: 20200101
